FAERS Safety Report 7011939-5 (Version None)
Quarter: 2010Q3

REPORT INFORMATION
  Report Type: 
  Country: None (occurrence: None)
  Receive Date: 20100924
  Receipt Date: 20100914
  Transmission Date: 20110219
  Serious: Yes (Other)
  Sender: FDA-Public Use
  Company Number: US-BAYER-201031591NA

PATIENT
  Age: 22 Year
  Sex: Female
  Weight: 43 kg

DRUGS (1)
  1. YAZ [Suspect]
     Indication: CONTRACEPTION
     Route: 048
     Dates: start: 20100719, end: 20100730

REACTIONS (3)
  - CONVULSION [None]
  - PARAESTHESIA [None]
  - VIITH NERVE PARALYSIS [None]
